FAERS Safety Report 6361521-8 (Version None)
Quarter: 2009Q3

REPORT INFORMATION
  Report Type: 
  Country: None (occurrence: None)
  Receive Date: 20090916
  Receipt Date: 20090916
  Transmission Date: 20100115
  Serious: Yes (Other)
  Sender: FDA-Public Use
  Company Number: None

PATIENT
  Age: 84 Year
  Sex: Female
  Weight: 68.0396 kg

DRUGS (1)
  1. MINOCYCLINE HCL [Suspect]
     Indication: ARTHRITIS
     Dosage: 100 MG 2 X DAILY
     Dates: start: 20080201, end: 20090901

REACTIONS (3)
  - ASTHENIA [None]
  - FATIGUE [None]
  - UNEVALUABLE EVENT [None]
